FAERS Safety Report 14113469 (Version 1)
Quarter: 2017Q4

REPORT INFORMATION
  Report Type: Spontaneous
  Country: US (occurrence: US)
  Receive Date: 20171023
  Receipt Date: 20171023
  Transmission Date: 20180321
  Serious: No
  Sender: FDA-Public Use
  Company Number: US-TEVA-761323ACC

PATIENT
  Sex: Female

DRUGS (2)
  1. GLIMEPIRIDE TEVA [Suspect]
     Active Substance: GLIMEPIRIDE
     Dosage: 1 MILLIGRAM DAILY;
     Dates: start: 2017
  2. GLIMEPIRIDE TEVA [Suspect]
     Active Substance: GLIMEPIRIDE
     Indication: DIABETES MELLITUS
     Dosage: 2 MILLIGRAM DAILY;
     Dates: start: 201701

REACTIONS (4)
  - Dizziness [Not Recovered/Not Resolved]
  - Headache [Not Recovered/Not Resolved]
  - Hyperhidrosis [Not Recovered/Not Resolved]
  - Presyncope [Not Recovered/Not Resolved]

NARRATIVE: CASE EVENT DATE: 201701
